FAERS Safety Report 8256934-3 (Version None)
Quarter: 2012Q2

REPORT INFORMATION
  Report Type: 
  Country: None (occurrence: None)
  Receive Date: 20120403
  Receipt Date: 20120326
  Transmission Date: 20120825
  Serious: Yes (Other)
  Sender: FDA-Public Use
  Company Number: CA-JNJFOC-20120312604

PATIENT
  Sex: Male
  Weight: 108 kg

DRUGS (10)
  1. OXYCONTIN [Concomitant]
     Dosage: 4-8 TABLETS
     Route: 048
  2. FOLIC ACID [Concomitant]
     Route: 048
  3. PANTOPRAZOLE SODIUM [Concomitant]
     Route: 048
  4. METHOTREXATE [Concomitant]
     Route: 048
  5. REMICADE [Suspect]
     Indication: ANKYLOSING SPONDYLITIS
     Route: 042
     Dates: start: 20000210
  6. TERAZOSIN HCL [Concomitant]
     Route: 048
  7. COZAAR [Concomitant]
     Route: 048
  8. METFORMIN HCL [Concomitant]
     Route: 048
  9. SENOKOT [Concomitant]
     Route: 048
  10. ADALAT [Concomitant]
     Route: 048

REACTIONS (2)
  - PULMONARY EMBOLISM [None]
  - INFECTION [None]
